FAERS Safety Report 7082585-2 (Version None)
Quarter: 2010Q3

REPORT INFORMATION
  Report Type: 
  Country: None (occurrence: None)
  Receive Date: 20100929
  Receipt Date: 20100624
  Transmission Date: 20110219
  Serious: No
  Sender: FDA-Public Use
  Company Number: US-WYE-H15895610

PATIENT
  Age: 48 Year
  Sex: Male
  Weight: 92.62 kg

DRUGS (4)
  1. PRISTIQ [Suspect]
     Indication: DEPRESSION
     Dosage: 50 MG 1X PER 1 DAY
     Dates: start: 20100301, end: 20100623
  2. LEVOTHYROXINE SODIUM [Concomitant]
  3. FISH (FISH OIL) [Concomitant]
  4. VITAMIN B (VITAMIN B) [Concomitant]

REACTIONS (4)
  - NONSPECIFIC REACTION [None]
  - PARAESTHESIA [None]
  - STOMATITIS [None]
  - URTICARIA [None]
